FAERS Safety Report 5926942-3 (Version None)
Quarter: 2008Q4

REPORT INFORMATION
  Report Type: 
  Country: None (occurrence: None)
  Receive Date: 20081021
  Receipt Date: 20081021
  Transmission Date: 20090506
  Serious: No
  Sender: FDA-Public Use
  Company Number: None

PATIENT
  Sex: Female
  Weight: 99.7913 kg

DRUGS (1)
  1. PHENERGAN [Suspect]
     Indication: NAUSEA
     Dosage: ONCE IV
     Route: 042
     Dates: start: 20080426, end: 20080426

REACTIONS (4)
  - DYSARTHRIA [None]
  - ERYTHEMA [None]
  - INCOHERENT [None]
  - TREMOR [None]
